FAERS Safety Report 18352148 (Version 2)
Quarter: 2021Q4

REPORT INFORMATION
  Report Type: Spontaneous
  Country: US (occurrence: US)
  Receive Date: 20201007
  Receipt Date: 20211008
  Transmission Date: 20220303
  Serious: Yes (Other)
  Sender: FDA-Public Use
  Company Number: US-SAARTEMIS-SAC202010010538

PATIENT
  Age: 57 Year
  Sex: Male

DRUGS (1)
  1. ZANTAC [Suspect]
     Active Substance: RANITIDINE HYDROCHLORIDE
     Indication: Dyspepsia
     Dosage: UNK :OTHER
     Dates: start: 199501, end: 201909

REACTIONS (2)
  - Prostate cancer stage 0 [Unknown]
  - Haematological malignancy [Unknown]

NARRATIVE: CASE EVENT DATE: 20000101
